FAERS Safety Report 9284248 (Version 2)
Quarter: 2013Q2

REPORT INFORMATION
  Report Type: Report from Study
  Country: DE (occurrence: DE)
  Receive Date: 20130510
  Receipt Date: 20130524
  Transmission Date: 20140414
  Serious: Yes (Hospitalization)
  Sender: FDA-Public Use
  Company Number: DE-BAYER-2010-007801

PATIENT
  Age: 62 Year
  Sex: Male
  Weight: 90 kg

DRUGS (62)
  1. REGORAFENIB [Suspect]
     Indication: COLORECTAL CANCER METASTATIC
     Dosage: 160 MG, QD
     Dates: start: 20100806, end: 20100812
  2. REGORAFENIB [Suspect]
     Indication: COLORECTAL CANCER METASTATIC
     Dosage: 160 MG, QD
     Dates: start: 20100820, end: 20100826
  3. REGORAFENIB [Suspect]
     Indication: COLORECTAL CANCER METASTATIC
     Dosage: 160 MG, QD
     Dates: start: 20100917, end: 20100923
  4. REGORAFENIB [Suspect]
     Indication: COLORECTAL CANCER METASTATIC
     Dosage: 160 MG, QD
     Dates: start: 20100930, end: 20101007
  5. REGORAFENIB [Suspect]
     Indication: COLORECTAL CANCER METASTATIC
     Dosage: 160 MG, QD
     Dates: start: 20101015, end: 20101021
  6. REGORAFENIB [Suspect]
     Indication: COLORECTAL CANCER METASTATIC
     Dosage: 160 MG, QD
     Dates: start: 20101029, end: 20101104
  7. REGORAFENIB [Suspect]
     Indication: COLORECTAL CANCER METASTATIC
     Dosage: 160 MG, QD
     Dates: start: 20101112, end: 20101118
  8. REGORAFENIB [Suspect]
     Indication: COLORECTAL CANCER METASTATIC
     Dosage: 160 MG, QD
     Dates: start: 20101126, end: 20101202
  9. REGORAFENIB [Suspect]
     Indication: COLORECTAL CANCER METASTATIC
     Dosage: 160 MG, QD
     Dates: start: 20101210, end: 20101216
  10. REGORAFENIB [Suspect]
     Indication: COLORECTAL CANCER METASTATIC
     Dosage: 160 MG, QD
     Dates: start: 20101224, end: 20101225
  11. ADDITIONAL STUDY MEDICATION [Suspect]
     Indication: COLON CANCER METASTATIC
     Dosage: 170 MG, ONCE
     Route: 042
     Dates: start: 20101221, end: 20101221
  12. ADDITIONAL STUDY MEDICATION [Suspect]
     Indication: COLON CANCER METASTATIC
     Dosage: 85 MG/M2, QD
     Route: 042
     Dates: start: 20100803, end: 20100803
  13. ADDITIONAL STUDY MEDICATION [Suspect]
     Indication: COLON CANCER METASTATIC
     Dosage: 85 MG/M2, QD
     Route: 042
     Dates: start: 20100817, end: 20100817
  14. ADDITIONAL STUDY MEDICATION [Suspect]
     Indication: COLON CANCER METASTATIC
     Dosage: 85 MG/M2, QD
     Route: 042
     Dates: start: 20100914, end: 20100914
  15. ADDITIONAL STUDY MEDICATION [Suspect]
     Indication: COLON CANCER METASTATIC
     Dosage: 85 MG/M2, QD
     Dates: start: 20100928, end: 20100928
  16. ADDITIONAL STUDY MEDICATION [Suspect]
     Indication: COLON CANCER METASTATIC
     Dosage: 85 MG/M2, QD
     Route: 042
     Dates: start: 20101012, end: 20101012
  17. ADDITIONAL STUDY MEDICATION [Suspect]
     Indication: COLON CANCER METASTATIC
     Dosage: 85 MG/M2, QD
     Route: 042
     Dates: start: 20101026, end: 20101026
  18. ADDITIONAL STUDY MEDICATION [Suspect]
     Indication: COLON CANCER METASTATIC
     Dosage: 85 MG/M2, QD
     Route: 042
     Dates: start: 20101109, end: 20101109
  19. ADDITIONAL STUDY MEDICATION [Suspect]
     Indication: COLON CANCER METASTATIC
     Dosage: 85 MG/M2, QD
     Route: 042
     Dates: start: 20101123, end: 20101123
  20. ADDITIONAL STUDY MEDICATION [Suspect]
     Indication: COLON CANCER METASTATIC
     Dosage: 85 MG/M2, QD
     Route: 042
     Dates: start: 20101207, end: 20101207
  21. ADDITIONAL STUDY MEDICATION [Suspect]
     Indication: COLON CANCER METASTATIC
     Dosage: 85 MG, UNK
     Route: 042
     Dates: start: 20101221, end: 20101221
  22. ADDITIONAL STUDY MEDICATION [Suspect]
     Indication: COLON CANCER METASTATIC
     Dosage: 800 MG, ONCE
     Route: 042
     Dates: start: 20101221, end: 20101221
  23. ADDITIONAL STUDY MEDICATION [Suspect]
     Indication: COLON CANCER METASTATIC
     Dosage: 400 MG/M2, QD
     Route: 042
     Dates: start: 20100803, end: 20100803
  24. ADDITIONAL STUDY MEDICATION [Suspect]
     Indication: COLON CANCER METASTATIC
     Dosage: 400 MG/M2, QD
     Route: 042
     Dates: start: 20100817, end: 20100817
  25. ADDITIONAL STUDY MEDICATION [Suspect]
     Indication: COLON CANCER METASTATIC
     Dosage: 400 MG/M2, QD
     Route: 042
     Dates: start: 20100914, end: 20100914
  26. ADDITIONAL STUDY MEDICATION [Suspect]
     Indication: COLON CANCER METASTATIC
     Dosage: 400 MG/M2, QD
     Route: 042
     Dates: start: 20100928, end: 20100928
  27. ADDITIONAL STUDY MEDICATION [Suspect]
     Indication: COLON CANCER METASTATIC
     Dosage: 400 MG/M2, QD
     Route: 042
     Dates: start: 20101012, end: 20101012
  28. ADDITIONAL STUDY MEDICATION [Suspect]
     Indication: COLON CANCER METASTATIC
     Dosage: 400 MG/M2, QD
     Route: 042
     Dates: start: 20101026, end: 20101026
  29. ADDITIONAL STUDY MEDICATION [Suspect]
     Indication: COLON CANCER METASTATIC
     Dosage: 400 MG/M2, QD
     Route: 042
     Dates: start: 20101009, end: 20101009
  30. ADDITIONAL STUDY MEDICATION [Suspect]
     Indication: COLON CANCER METASTATIC
     Dosage: 400 MG/M2, QD
     Route: 042
     Dates: start: 20101123, end: 20101123
  31. ADDITIONAL STUDY MEDICATION [Suspect]
     Indication: COLON CANCER METASTATIC
     Dosage: 400 MG/M2, QD
     Route: 042
     Dates: start: 20101207, end: 20101207
  32. ADDITIONAL STUDY MEDICATION [Suspect]
     Indication: COLON CANCER METASTATIC
  33. ADDITIONAL STUDY MEDICATION [Suspect]
     Indication: COLON CANCER METASTATIC
     Dosage: 800 MG, ONCE
     Route: 040
     Dates: start: 20101221, end: 20101221
  34. ADDITIONAL STUDY MEDICATION [Suspect]
     Indication: COLON CANCER METASTATIC
     Dosage: 4800 MG, ONCE
     Route: 042
     Dates: start: 20101221, end: 20101221
  35. ADDITIONAL STUDY MEDICATION [Suspect]
     Indication: COLON CANCER METASTATIC
     Dosage: 400 MG/M2, QD
     Route: 040
     Dates: start: 20100803, end: 20100803
  36. ADDITIONAL STUDY MEDICATION [Suspect]
     Indication: COLON CANCER METASTATIC
     Dosage: 400 MG/M2, QD
     Route: 040
     Dates: start: 20100817, end: 20100817
  37. ADDITIONAL STUDY MEDICATION [Suspect]
     Indication: COLON CANCER METASTATIC
     Dosage: 400 MG/M2, QD
     Route: 040
     Dates: start: 20100914, end: 20100914
  38. ADDITIONAL STUDY MEDICATION [Suspect]
     Indication: COLON CANCER METASTATIC
     Dosage: 400 MG/M2, QD
     Route: 040
     Dates: start: 20100928, end: 20100928
  39. ADDITIONAL STUDY MEDICATION [Suspect]
     Indication: COLON CANCER METASTATIC
     Dosage: 400 MG/M2, QD
     Route: 040
     Dates: start: 20101012, end: 20101012
  40. ADDITIONAL STUDY MEDICATION [Suspect]
     Indication: COLON CANCER METASTATIC
     Dosage: 400 MG/M2, QD
     Route: 040
     Dates: start: 20101026, end: 20101026
  41. ADDITIONAL STUDY MEDICATION [Suspect]
     Indication: COLON CANCER METASTATIC
     Dosage: 400 MG/M2, QD
     Route: 040
     Dates: start: 20101109, end: 20101109
  42. ADDITIONAL STUDY MEDICATION [Suspect]
     Indication: COLON CANCER METASTATIC
     Dosage: 400 MG/M2, QD
     Route: 040
     Dates: start: 20101123, end: 20101123
  43. ADDITIONAL STUDY MEDICATION [Suspect]
     Indication: COLON CANCER METASTATIC
     Dosage: 400 MG/M2, QD
     Route: 040
     Dates: start: 20101207, end: 20101207
  44. ADDITIONAL STUDY MEDICATION [Suspect]
     Indication: COLON CANCER METASTATIC
     Dosage: 2400 MG/M2, QD
     Route: 042
     Dates: start: 20100803, end: 20100805
  45. ADDITIONAL STUDY MEDICATION [Suspect]
     Indication: COLON CANCER METASTATIC
     Dosage: 2400 MG/M2, QD
     Route: 042
     Dates: start: 20100817, end: 20100819
  46. ADDITIONAL STUDY MEDICATION [Suspect]
     Indication: COLON CANCER METASTATIC
     Dosage: 2400 MG/M2, QD
     Route: 042
     Dates: start: 20100914, end: 20100918
  47. ADDITIONAL STUDY MEDICATION [Suspect]
     Indication: COLON CANCER METASTATIC
     Dosage: 2400 MG/M2, QD
     Route: 042
     Dates: start: 20100928, end: 20100930
  48. ADDITIONAL STUDY MEDICATION [Suspect]
     Indication: COLON CANCER METASTATIC
     Dosage: 2400 MG/M2, QD
     Route: 042
     Dates: start: 20101012, end: 20101014
  49. ADDITIONAL STUDY MEDICATION [Suspect]
     Indication: COLON CANCER METASTATIC
     Dosage: 2400 MG/M2, QD
     Route: 042
     Dates: start: 20101026, end: 20101028
  50. ADDITIONAL STUDY MEDICATION [Suspect]
     Indication: COLON CANCER METASTATIC
     Dosage: 2400 MG/M2, QD
     Route: 042
     Dates: start: 20101109, end: 20101111
  51. ADDITIONAL STUDY MEDICATION [Suspect]
     Indication: COLON CANCER METASTATIC
     Dosage: 2400 MG/M2, QD
     Route: 042
     Dates: start: 20101123, end: 20101125
  52. ADDITIONAL STUDY MEDICATION [Suspect]
     Indication: COLON CANCER METASTATIC
     Dosage: 2400 MG/M2, QD
     Route: 042
     Dates: start: 20101207, end: 20101209
  53. ADDITIONAL STUDY MEDICATION [Suspect]
     Indication: COLORECTAL CANCER METASTATIC
  54. MICROPAQUE [Concomitant]
     Dosage: 49.2
     Dates: start: 20100730, end: 20100730
  55. MICROPAQUE [Concomitant]
     Dosage: 49.2
     Dates: start: 20101203, end: 20101203
  56. IMERON [Concomitant]
     Dosage: 350 MG
     Dates: start: 20100730, end: 20100730
  57. IMERON [Concomitant]
     Dosage: 350 MG
     Dates: start: 20101203, end: 20101203
  58. NYSTADERM [Concomitant]
     Indication: PROPHYLAXIS
     Dosage: UNK UNK, PRN
     Dates: start: 20100803
  59. LOPERAMID [Concomitant]
     Indication: PROPHYLAXIS AGAINST DIARRHOEA
     Dosage: UNK UNK, PRN
     Dates: start: 20100803
  60. TAVOR [Concomitant]
     Indication: SLEEP DISORDER
     Dosage: 1 MG, PRN
     Dates: start: 20101014
  61. CIPROBAY [Concomitant]
     Indication: WOUND DEHISCENCE
     Dosage: 500 MG
     Dates: start: 20110104, end: 20110110
  62. NOVALGIN [Concomitant]
     Indication: PAIN
     Dosage: 500 MG
     Dates: start: 20101227, end: 20110104

REACTIONS (2)
  - Diarrhoea [Recovered/Resolved]
  - Wound dehiscence [Recovering/Resolving]
